FAERS Safety Report 8812565 (Version 1)
Quarter: 2012Q4

REPORT INFORMATION
  Report Type: 
  Country: PE (occurrence: PE)
  Receive Date: 20120927
  Receipt Date: 20120927
  Transmission Date: 20130627
  Serious: Yes (Death, Other)
  Sender: FDA-Public Use
  Company Number: PHHO2006PE10941

PATIENT
  Sex: Male

DRUGS (9)
  1. GLIVEC [Suspect]
     Indication: CHRONIC MYELOID LEUKAEMIA
     Dates: start: 20030508
  2. GLIVEC [Suspect]
     Dosage: 400 mg, QD
     Route: 048
     Dates: start: 20030519, end: 20040526
  3. GLIVEC [Suspect]
     Dosage: 600 mg, QD
     Route: 048
     Dates: start: 20040527, end: 20040623
  4. GLIVEC [Suspect]
     Dosage: 300 mg, QD
     Route: 048
     Dates: start: 20040624, end: 20040902
  5. GLIVEC [Suspect]
     Dosage: 600 mg, QD
     Route: 048
     Dates: start: 20040903
  6. GLIVEC [Suspect]
     Dosage: 300 mg, QD
     Route: 048
  7. GLIVEC [Suspect]
     Dosage: 400 mg, QD
     Route: 048
     Dates: end: 200605
  8. GLIVEC [Suspect]
     Dosage: 300 mg, QD
     Route: 048
  9. HYDROXYUREA [Concomitant]
     Indication: CHRONIC MYELOID LEUKAEMIA

REACTIONS (8)
  - Leukaemia recurrent [Fatal]
  - Blast crisis in myelogenous leukaemia [Fatal]
  - Haemorrhage [Fatal]
  - White blood cell count increased [Unknown]
  - Haemoglobin decreased [Unknown]
  - Thrombocytopenia [Unknown]
  - Neutropenia [Unknown]
  - Drug ineffective [Unknown]
